FAERS Safety Report 7352335-0 (Version None)
Quarter: 2011Q1

REPORT INFORMATION
  Report Type: 
  Country: None (occurrence: None)
  Receive Date: 20110309
  Receipt Date: 20110309
  Transmission Date: 20110831
  Serious: Yes (Disabling)
  Sender: FDA-Public Use
  Company Number: None

PATIENT
  Age: 45 Year
  Sex: Female
  Weight: 61.2356 kg

DRUGS (1)
  1. CIPROFLOXACIN [Suspect]
     Indication: INFECTION
     Dosage: 1 PACKAGE W/ 2 PILLS ONLY 2 PILLS PO
     Route: 048
     Dates: start: 20110202, end: 20110202

REACTIONS (3)
  - ROTATOR CUFF SYNDROME [None]
  - MUSCLE RUPTURE [None]
  - TENDONITIS [None]
